FAERS Safety Report 17267371 (Version 1)
Quarter: 2020Q1

REPORT INFORMATION
  Report Type: Spontaneous
  Country: US (occurrence: US)
  Receive Date: 20200110
  Receipt Date: 20200110
  Transmission Date: 20200409
  Serious: Yes (Hospitalization, Other)
  Sender: FDA-Public Use
  Company Number: None

PATIENT
  Age: 46 Year
  Sex: Male
  Weight: 108.86 kg

DRUGS (2)
  1. BACLOFEN PUMP [Suspect]
     Active Substance: BACLOFEN
     Dates: start: 20170905, end: 20191224
  2. BACLOFEN. [Suspect]
     Active Substance: BACLOFEN

REACTIONS (3)
  - Pain in extremity [None]
  - Limb discomfort [None]
  - Paraesthesia [None]

NARRATIVE: CASE EVENT DATE: 20170905
